FAERS Safety Report 9051844 (Version 1)
Quarter: 2013Q1

REPORT INFORMATION
  Report Type: Spontaneous
  Country: US (occurrence: US)
  Receive Date: 20130207
  Receipt Date: 20130207
  Transmission Date: 20140127
  Serious: Yes (Hospitalization)
  Sender: FDA-Public Use
  Company Number: US-BAYER-2013-015137

PATIENT
  Age: 39 Year
  Sex: Female
  Weight: 54.42 kg

DRUGS (3)
  1. YASMIN [Suspect]
     Indication: CONTRACEPTION
  2. ATROVENT [Concomitant]
  3. ALBUTEROL [Concomitant]

REACTIONS (1)
  - Pulmonary embolism [None]
